FAERS Safety Report 15106987 (Version 1)
Quarter: 2018Q3

REPORT INFORMATION
  Report Type: Spontaneous
  Country: US (occurrence: US)
  Receive Date: 20180704
  Receipt Date: 20180704
  Transmission Date: 20181010
  Serious: No
  Sender: FDA-Public Use
  Company Number: US-PFIZER INC-2018269003

PATIENT
  Age: 46 Year

DRUGS (2)
  1. ADVIL PM [Suspect]
     Active Substance: DIPHENHYDRAMINE CITRATE\IBUPROFEN
     Indication: INSOMNIA
     Dosage: 1 DF (WHOLE PILL), UNK
  2. ADVIL PM [Suspect]
     Active Substance: DIPHENHYDRAMINE CITRATE\IBUPROFEN
     Dosage: UNK (ONLY ABOUT 1/4 OF A PILL)

REACTIONS (3)
  - Headache [Recovered/Resolved]
  - Wrong technique in product usage process [Unknown]
  - Somnolence [Unknown]
